FAERS Safety Report 5455316-7 (Version None)
Quarter: 2007Q3

REPORT INFORMATION
  Report Type: 
  Country: None (occurrence: None)
  Receive Date: 20070913
  Receipt Date: 20070913
  Transmission Date: 20080115
  Serious: Yes (Hospitalization)
  Sender: FDA-Public Use
  Company Number: None

PATIENT
  Age: 76 Year
  Sex: Male

DRUGS (2)
  1. WARFARIN SODIUM [Suspect]
     Indication: INFECTION
     Dosage: 5MG EVERY DAY PO
     Route: 048
     Dates: start: 20000427
  2. CIPROFLOXACIN [Suspect]
     Dosage: 500MG BID PO
     Route: 048
     Dates: start: 20070817, end: 20070827

REACTIONS (1)
  - INTERNATIONAL NORMALISED RATIO INCREASED [None]
